FAERS Safety Report 5738012-8 (Version None)
Quarter: 2008Q2

REPORT INFORMATION
  Report Type: 
  Country: None (occurrence: None)
  Receive Date: 20080509
  Receipt Date: 20080507
  Transmission Date: 20081010
  Serious: Yes (Congenital Anomaly, Other)
  Sender: FDA-Public Use
  Company Number: 100#03#2008-02375

PATIENT
  Sex: Male

DRUGS (6)
  1. SERTRALINE [Suspect]
     Indication: DRUG EXPOSURE DURING PREGNANCY
     Dosage: 100 MG ONCE DAILY TRANSPLACENTAL; 100 MG TRANSPLACENTAL
     Route: 064
     Dates: start: 20041109, end: 20050901
  2. SERTRALINE [Suspect]
     Indication: DRUG EXPOSURE DURING PREGNANCY
     Dosage: 100 MG ONCE DAILY TRANSPLACENTAL; 100 MG TRANSPLACENTAL
     Route: 064
     Dates: start: 20051201, end: 20060201
  3. VENLAFAXINE HCL [Suspect]
     Indication: DRUG EXPOSURE DURING PREGNANCY
     Dosage: 100 MG TRANSPLACENTAL; 150 MG TRANSPLACENTAL; 37.5 MG } 75 MG ONCE DAILY TRANSPLACENTAL
     Route: 064
     Dates: start: 20060201, end: 20060301
  4. VENLAFAXINE HCL [Suspect]
     Indication: DRUG EXPOSURE DURING PREGNANCY
     Dosage: 100 MG TRANSPLACENTAL; 150 MG TRANSPLACENTAL; 37.5 MG } 75 MG ONCE DAILY TRANSPLACENTAL
     Route: 064
     Dates: start: 20060301
  5. AMOXICILLIN [Concomitant]
  6. CEPHALEXIN [Concomitant]

REACTIONS (10)
  - ABNORMAL PALMAR/PLANTAR CREASES [None]
  - CAESAREAN SECTION [None]
  - DRUG EXPOSURE DURING PREGNANCY [None]
  - EAR MALFORMATION [None]
  - FOETAL DAMAGE [None]
  - HEAD DEFORMITY [None]
  - MATERNAL DRUGS AFFECTING FOETUS [None]
  - MULTIPLE CONGENITAL ABNORMALITIES [None]
  - OBLIQUE PRESENTATION [None]
  - POLYHYDRAMNIOS [None]
